FAERS Safety Report 8303979-0 (Version None)
Quarter: 2012Q2

REPORT INFORMATION
  Report Type: 
  Country: None (occurrence: None)
  Receive Date: 20120423
  Receipt Date: 20120416
  Transmission Date: 20120825
  Serious: Yes (Death)
  Sender: FDA-Public Use
  Company Number: US-ASTELLAS-2012US003958

PATIENT
  Sex: Female
  Weight: 50 kg

DRUGS (1)
  1. PROGRAF [Suspect]
     Indication: HEART TRANSPLANT
     Dosage: 4 MG, BID
     Route: 048

REACTIONS (2)
  - RENAL FAILURE [None]
  - IMMUNOSUPPRESSION [None]
